FAERS Safety Report 7525847-4 (Version None)
Quarter: 2011Q2

REPORT INFORMATION
  Report Type: 
  Country: None (occurrence: None)
  Receive Date: 20110606
  Receipt Date: 20110519
  Transmission Date: 20111010
  Serious: Yes (Hospitalization)
  Sender: FDA-Public Use
  Company Number: A0815829A

PATIENT
  Age: 56 Year
  Sex: Female

DRUGS (6)
  1. ALBUTEROL SULFATE AUTOHALER [Concomitant]
  2. GLYBURIDE [Concomitant]
  3. AEROBID [Concomitant]
  4. AVANDIA [Suspect]
     Indication: DIABETES MELLITUS
     Dosage: 4MG TWICE PER DAY
     Route: 048
     Dates: start: 20010308, end: 20070520
  5. CLARITIN [Concomitant]
  6. LIPITOR [Concomitant]

REACTIONS (2)
  - MYOCARDIAL INFARCTION [None]
  - CARDIAC FAILURE CONGESTIVE [None]
